FAERS Safety Report 4867600-6 (Version None)
Quarter: 2005Q4

REPORT INFORMATION
  Report Type: 
  Country: None (occurrence: None)
  Receive Date: 20051222
  Receipt Date: 20051214
  Transmission Date: 20060501
  Serious: Yes (Other)
  Sender: FDA-Public Use
  Company Number: A-US2005-08733

PATIENT
  Age: 78 Year
  Sex: Male

DRUGS (5)
  1. TRACLEER [Suspect]
     Indication: PULMONARY HYPERTENSION
     Dosage: ORAL; 62.5 MG, BID, ORAL
     Route: 048
     Dates: end: 20050211
  2. TRACLEER [Suspect]
     Indication: PULMONARY HYPERTENSION
     Dosage: ORAL; 62.5 MG, BID, ORAL
     Route: 048
     Dates: end: 20050601
  3. ZETIA [Suspect]
  4. ZOCOR [Concomitant]
  5. LIPITOR [Concomitant]

REACTIONS (4)
  - ALANINE AMINOTRANSFERASE INCREASED [None]
  - ASPARTATE AMINOTRANSFERASE INCREASED [None]
  - BLOOD ALKALINE PHOSPHATASE INCREASED [None]
  - BLOOD BILIRUBIN INCREASED [None]
